FAERS Safety Report 4890497-5 (Version None)
Quarter: 2006Q1

REPORT INFORMATION
  Report Type: 
  Country: None (occurrence: None)
  Receive Date: 20060123
  Receipt Date: 20060123
  Transmission Date: 20060701
  Serious: Yes (Other)
  Sender: FDA-Public Use
  Company Number: None

PATIENT
  Age: 52 Year
  Sex: Male

DRUGS (11)
  1. IMIPENEM - CILASTATIN [Suspect]
     Dosage: 500 MG Q 6 H, IV
     Route: 042
     Dates: start: 20050205, end: 20050212
  2. CEFTRIAXONE [Concomitant]
  3. UNASYN [Concomitant]
  4. ZOSYN [Concomitant]
  5. KEFLEX [Concomitant]
  6. DOXYCYCLINE [Concomitant]
  7. NERUONTIN [Concomitant]
  8. ASPIRIN [Concomitant]
  9. ATENOLOL [Concomitant]
  10. COZAAR [Concomitant]
  11. INSULIN [Concomitant]

REACTIONS (7)
  - ALCOHOL USE [None]
  - ALCOHOL WITHDRAWAL SYNDROME [None]
  - INJURY [None]
  - LIVER DISORDER [None]
  - PANCREATITIS NECROTISING [None]
  - PYREXIA [None]
  - WHITE BLOOD CELL COUNT INCREASED [None]
